FAERS Safety Report 8206934-4 (Version None)
Quarter: 2012Q1

REPORT INFORMATION
  Report Type: 
  Country: None (occurrence: None)
  Receive Date: 20120314
  Receipt Date: 20120302
  Transmission Date: 20120608
  Serious: No
  Sender: FDA-Public Use
  Company Number: US-JNJFOC-20120204940

PATIENT
  Sex: Female

DRUGS (1)
  1. INVEGA SUSTENNA [Suspect]
     Indication: PRODUCT USED FOR UNKNOWN INDICATION
     Dosage: SECOND INITIATION DOSE
     Route: 030
     Dates: start: 20120130

REACTIONS (3)
  - ACCIDENTAL EXPOSURE [None]
  - UNDERDOSE [None]
  - DEVICE LEAKAGE [None]
